FAERS Safety Report 6495993-5 (Version None)
Quarter: 2009Q4

REPORT INFORMATION
  Report Type: 
  Country: None (occurrence: None)
  Receive Date: 20091214
  Receipt Date: 20090911
  Transmission Date: 20100525
  Serious: No
  Sender: FDA-Public Use
  Company Number: US-BRISTOL-MYERS SQUIBB COMPANY-14776736

PATIENT
  Age: 55 Year
  Sex: Male
  Weight: 63 kg

DRUGS (4)
  1. ABILIFY [Suspect]
     Indication: BIPOLAR DISORDER
     Dosage: DURATION: ABOUT 7 YEARS
     Dates: end: 20080901
  2. SEROQUEL [Suspect]
     Indication: BIPOLAR DISORDER
     Dosage: DURATION: ABOUT 7 YEARS
     Dates: end: 20080901
  3. ZYPREXA [Suspect]
     Indication: BIPOLAR DISORDER
  4. ANTIDEPRESSANT [Concomitant]

REACTIONS (4)
  - BLOOD CHOLESTEROL INCREASED [None]
  - PAIN IN EXTREMITY [None]
  - TARDIVE DYSKINESIA [None]
  - WEIGHT INCREASED [None]
